FAERS Safety Report 8828598 (Version 2)
Quarter: 2015Q1

REPORT INFORMATION
  Report Type: Report from Study
  Country: US (occurrence: US)
  Receive Date: 20121005
  Receipt Date: 20150205
  Transmission Date: 20150721
  Serious: Yes (Death, Other)
  Sender: FDA-Public Use
  Company Number: US-ROCHE-1130901

PATIENT
  Age: 95 Year
  Sex: Male

DRUGS (13)
  1. CEFTRIAXONE SODIUM. [Suspect]
     Active Substance: CEFTRIAXONE SODIUM
     Indication: PRODUCT USED FOR UNKNOWN INDICATION
     Route: 065
     Dates: start: 20001224
  2. RITUXAN [Suspect]
     Active Substance: RITUXIMAB
     Indication: CHRONIC LYMPHOCYTIC LEUKAEMIA
     Route: 042
     Dates: start: 20010131
  3. RITUXAN [Suspect]
     Active Substance: RITUXIMAB
     Dosage: DATE OF LAST DOSE RECEIVED 14/FEB/2001
     Route: 042
  4. LEVAQUIN [Concomitant]
     Active Substance: LEVOFLOXACIN
  5. NAQUA [Concomitant]
     Active Substance: TRICHLORMETHIAZIDE
     Route: 065
  6. FERROUS SULFATE [Concomitant]
     Active Substance: FERROUS SULFATE\FERROUS SULFATE, DRIED
  7. HYDRALAZINE [Concomitant]
     Active Substance: HYDRALAZINE HYDROCHLORIDE
     Route: 065
  8. VITAMIN C [Concomitant]
     Active Substance: ASCORBIC ACID
  9. CHLORAMBUCIL [Concomitant]
     Active Substance: CHLORAMBUCIL
     Route: 065
  10. ADALAT [Concomitant]
     Active Substance: NIFEDIPINE
     Route: 065
  11. PREDNISONE. [Concomitant]
     Active Substance: PREDNISONE
     Route: 065
  12. ATENOLOL. [Concomitant]
     Active Substance: ATENOLOL
     Route: 065
  13. LOVENOX [Concomitant]
     Active Substance: ENOXAPARIN SODIUM

REACTIONS (16)
  - Hypotension [Unknown]
  - Drug dose omission [Unknown]
  - Fatigue [Unknown]
  - Cough [Unknown]
  - Chest pain [Recovered/Resolved]
  - Gastrointestinal motility disorder [Unknown]
  - Death [Fatal]
  - Urinary incontinence [Recovering/Resolving]
  - Asthenia [Unknown]
  - Nocturia [Unknown]
  - Cytopenia [Unknown]
  - Dyspepsia [Unknown]
  - Hypoacusis [Unknown]
  - Musculoskeletal chest pain [Unknown]
  - Peripheral swelling [Unknown]
  - Anaemia [Unknown]

NARRATIVE: CASE EVENT DATE: 20010306
